FAERS Safety Report 12943280 (Version 2)
Quarter: 2017Q1

REPORT INFORMATION
  Report Type: Spontaneous
  Country: US (occurrence: US)
  Receive Date: 20161115
  Receipt Date: 20170123
  Transmission Date: 20170428
  Serious: Yes (Other)
  Sender: FDA-Public Use
  Company Number: US-PFIZER INC-2016530009

PATIENT
  Age: 42 Year
  Sex: Male

DRUGS (7)
  1. ENBREL [Suspect]
     Active Substance: ETANERCEPT
     Dosage: UNK
     Dates: start: 201608, end: 201610
  2. OTEZLA [Suspect]
     Active Substance: APREMILAST
     Dosage: UNK
     Dates: start: 201608, end: 201608
  3. HUMIRA [Concomitant]
     Active Substance: ADALIMUMAB
     Dosage: UNK
     Dates: start: 2012, end: 2012
  4. METHOTREXATE SODIUM. [Suspect]
     Active Substance: METHOTREXATE SODIUM
     Dosage: UNK
     Dates: start: 2009
  5. ENBREL [Suspect]
     Active Substance: ETANERCEPT
     Indication: PSORIATIC ARTHROPATHY
     Dosage: 25 MG, 2 TIMES/WK
     Dates: start: 1998, end: 2012
  6. ENBREL [Suspect]
     Active Substance: ETANERCEPT
     Indication: PSORIASIS
     Dosage: UNK
     Dates: start: 2012, end: 201608
  7. EFFEXOR [Concomitant]
     Active Substance: VENLAFAXINE HYDROCHLORIDE
     Indication: DEPRESSION
     Dosage: UNK

REACTIONS (11)
  - Gastrointestinal hypomotility [Unknown]
  - Drug effect incomplete [Unknown]
  - Condition aggravated [Unknown]
  - Malaise [Unknown]
  - Inguinal hernia [Unknown]
  - Hypertension [Unknown]
  - Mood altered [Unknown]
  - Psoriasis [Unknown]
  - Depression [Not Recovered/Not Resolved]
  - Condition aggravated [Not Recovered/Not Resolved]
  - Nausea [Unknown]

NARRATIVE: CASE EVENT DATE: 2010
